FAERS Safety Report 10267473 (Version 1)
Quarter: 2014Q2

REPORT INFORMATION
  Report Type: Spontaneous
  Country: US (occurrence: US)
  Receive Date: 20140630
  Receipt Date: 20140630
  Transmission Date: 20141212
  Serious: Yes (Hospitalization, Other)
  Sender: FDA-Public Use
  Company Number: US-B.I. PHARMACEUTICALS,INC./RIDGEFIELD-2014-BI-28993GD

PATIENT
  Age: 59 Year
  Sex: Male

DRUGS (2)
  1. PRADAXA [Suspect]
     Indication: ATRIAL FIBRILLATION
     Dosage: 300 MG
     Route: 048
  2. ALTEPLASE [Suspect]
     Indication: CEREBRAL INFARCTION
     Dosage: 0.9 MG/KG
     Route: 065

REACTIONS (2)
  - Cerebral infarction [Unknown]
  - Haemorrhagic transformation stroke [Unknown]
